FAERS Safety Report 17025949 (Version 1)
Quarter: 2019Q4

REPORT INFORMATION
  Report Type: Spontaneous
  Country: FR (occurrence: FR)
  Receive Date: 20191113
  Receipt Date: 20191113
  Transmission Date: 20200122
  Serious: Yes (Other)
  Sender: FDA-Public Use
  Company Number: FR-PFIZER INC-2019483743

PATIENT
  Age: 39 Year
  Sex: Female
  Weight: 68 kg

DRUGS (1)
  1. PREGABALIN. [Suspect]
     Active Substance: PREGABALIN
     Indication: NEURALGIA
     Dosage: 300 MG, 1X/DAY
     Route: 048
     Dates: start: 20190805, end: 20190911

REACTIONS (3)
  - Suicidal ideation [Recovered/Resolved]
  - Headache [Recovered/Resolved]
  - Major depression [Recovered/Resolved]

NARRATIVE: CASE EVENT DATE: 201908
